FAERS Safety Report 21751118 (Version 2)
Quarter: 2023Q1

REPORT INFORMATION
  Report Type: Spontaneous
  Country: CN (occurrence: CN)
  Receive Date: 20221220
  Receipt Date: 20230106
  Transmission Date: 20230417
  Serious: Yes (Hospitalization, Other)
  Sender: FDA-Public Use
  Company Number: CN-BAXTER-2022BAX030608

PATIENT
  Age: 33 Year
  Sex: Male
  Weight: 85 kg

DRUGS (3)
  1. LEVOFLOXACIN [Suspect]
     Active Substance: LEVOFLOXACIN
     Indication: Endocarditis
     Dosage: UNK
     Route: 065
  2. LEVOFLOXACIN [Suspect]
     Active Substance: LEVOFLOXACIN
     Indication: Symptomatic treatment
  3. LEVOFLOXACIN [Suspect]
     Active Substance: LEVOFLOXACIN
     Indication: Supportive care

REACTIONS (6)
  - Cerebral infarction [Unknown]
  - Dysarthria [Unknown]
  - Muscular weakness [Unknown]
  - Oral disorder [Unknown]
  - Critical illness [Unknown]
  - Drug ineffective [Unknown]
